FAERS Safety Report 9152647 (Version 1)
Quarter: 2013Q1

REPORT INFORMATION
  Report Type: Spontaneous
  Country: CA (occurrence: CA)
  Receive Date: 20130308
  Receipt Date: 20130308
  Transmission Date: 20140127
  Serious: Yes (Hospitalization)
  Sender: FDA-Public Use
  Company Number: CA-B.I. PHARMACEUTICALS,INC./RIDGEFIELD-2013-CN-00333CN

PATIENT
  Age: 94 Year
  Sex: Female
  Weight: 63 kg

DRUGS (13)
  1. PRADAX [Suspect]
     Dosage: 220 MG
     Route: 048
  2. ACETAMINOPHEN [Concomitant]
  3. DIGOXIN [Concomitant]
  4. FUROSEMIDE [Concomitant]
  5. LEVOTHYROXINE [Concomitant]
  6. LISINOPRIL [Concomitant]
  7. METOPROLOL [Concomitant]
  8. NITROGLYCERIN [Concomitant]
  9. POTASSIUM CHLORIDE [Concomitant]
  10. RABEPRAZOLE [Concomitant]
  11. SIMVASTATIN [Concomitant]
  12. TEMAZEPAM [Concomitant]
  13. VITAMIN D [Concomitant]

REACTIONS (3)
  - Creatinine renal clearance decreased [Recovered/Resolved]
  - Gastrointestinal haemorrhage [Recovered/Resolved]
  - Haemoglobin decreased [Recovered/Resolved]
